FAERS Safety Report 16538022 (Version 1)
Quarter: 2019Q3

REPORT INFORMATION
  Report Type: Spontaneous
  Country: US (occurrence: US)
  Receive Date: 20190708
  Receipt Date: 20190708
  Transmission Date: 20191004
  Serious: No
  Sender: FDA-Public Use
  Company Number: US-SA-2019SA176056

PATIENT
  Age: 41 Year
  Sex: Female

DRUGS (1)
  1. ALLEGRA [Suspect]
     Active Substance: FEXOFENADINE HYDROCHLORIDE
     Indication: SNEEZING
     Dosage: 3 ML, UNK
     Route: 065
     Dates: start: 20190624, end: 20190624

REACTIONS (1)
  - Diarrhoea [Unknown]
